FAERS Safety Report 12869687 (Version 2)
Quarter: 2017Q1

REPORT INFORMATION
  Report Type: Report from Study
  Country: US (occurrence: US)
  Receive Date: 20161020
  Receipt Date: 20170124
  Transmission Date: 20170428
  Serious: No
  Sender: FDA-Public Use
  Company Number: US-AMGEN-USASL2016073398

PATIENT
  Age: 69 Year
  Sex: Female

DRUGS (1)
  1. REPATHA [Suspect]
     Active Substance: EVOLOCUMAB
     Indication: HYPERLIPIDAEMIA
     Dosage: 140 MG, Q2WK
     Route: 065

REACTIONS (5)
  - Asthenia [Not Recovered/Not Resolved]
  - Influenza like illness [Recovering/Resolving]
  - Throat irritation [Not Recovered/Not Resolved]
  - Laboratory test abnormal [Unknown]
  - Fatigue [Not Recovered/Not Resolved]
